FAERS Safety Report 15981310 (Version 1)
Quarter: 2019Q1

REPORT INFORMATION
  Report Type: Spontaneous
  Country: SG (occurrence: SG)
  Receive Date: 20190218
  Receipt Date: 20190218
  Transmission Date: 20190418
  Serious: Yes (Disabling)
  Sender: FDA-Public Use
  Company Number: None

PATIENT
  Age: 50 Year
  Sex: Male
  Weight: 77 kg

DRUGS (7)
  1. LIORESAL [Concomitant]
     Active Substance: BACLOFEN
  2. VIT B [Concomitant]
     Active Substance: VITAMIN B
  3. CELEBREX [Concomitant]
     Active Substance: CELECOXIB
  4. TRAMADOL. [Suspect]
     Active Substance: TRAMADOL
     Indication: BACK PAIN
     Dosage: ?          QUANTITY:1 CAPSULE(S);?
     Route: 048
     Dates: start: 20181228, end: 20190210
  5. VITAMIN E [Concomitant]
     Active Substance: .ALPHA.-TOCOPHEROL
  6. CLONAZEPAM. [Concomitant]
     Active Substance: CLONAZEPAM
  7. MYONAL [Concomitant]

REACTIONS (3)
  - Nervousness [None]
  - Anxiety [None]
  - Stiff person syndrome [None]

NARRATIVE: CASE EVENT DATE: 20181230
